FAERS Safety Report 6438008-7 (Version None)
Quarter: 2009Q4

REPORT INFORMATION
  Report Type: 
  Country: None (occurrence: None)
  Receive Date: 20091112
  Receipt Date: 20091104
  Transmission Date: 20100525
  Serious: Yes (Other)
  Sender: FDA-Public Use
  Company Number: US-JNJCH-2009029037

PATIENT
  Age: 74 Year
  Sex: Female
  Weight: 50.8 kg

DRUGS (1)
  1. ROGAINE [Suspect]
     Dosage: TEXT:1 ML 1 X A DAY
     Route: 061

REACTIONS (1)
  - TEMPORAL ARTERITIS [None]
